FAERS Safety Report 8473706-5 (Version None)
Quarter: 2012Q2

REPORT INFORMATION
  Report Type: 
  Country: None (occurrence: None)
  Receive Date: 20120628
  Receipt Date: 20111027
  Transmission Date: 20120825
  Serious: Yes (Death)
  Sender: FDA-Public Use
  Company Number: US-MYLANLABS-2011S1019487

PATIENT
  Age: 44 Year
  Sex: Male

DRUGS (3)
  1. CLOZAPINE [Suspect]
     Indication: SCHIZOPHRENIA
     Route: 048
  2. CLONAZEPAM [Concomitant]
  3. RISPERDAL [Concomitant]
     Dosage: 1MG EVERY MORNING AND 6MG AT BEDTIME

REACTIONS (1)
  - COMPLETED SUICIDE [None]
